FAERS Safety Report 7402833-6 (Version None)
Quarter: 2011Q2

REPORT INFORMATION
  Report Type: 
  Country: None (occurrence: None)
  Receive Date: 20110408
  Receipt Date: 20110317
  Transmission Date: 20111010
  Serious: No
  Sender: FDA-Public Use
  Company Number: JP-ROCHE-770074

PATIENT

DRUGS (1)
  1. TAMIFLU [Suspect]
     Dosage: DOSAGE IS UNCERTAIN
     Route: 063
     Dates: start: 20110315, end: 20110317

REACTIONS (1)
  - DRUG EXPOSURE VIA BREAST MILK [None]
